FAERS Safety Report 8600607-1 (Version None)
Quarter: 2012Q3

REPORT INFORMATION
  Report Type: 
  Country: None (occurrence: None)
  Receive Date: 20120817
  Receipt Date: 20120807
  Transmission Date: 20120928
  Serious: Yes (Other)
  Sender: FDA-Public Use
  Company Number: JP-JNJFOC-20120805989

PATIENT
  Age: 94 Year
  Sex: Female

DRUGS (1)
  1. RISPERDAL [Suspect]
     Indication: HALLUCINATION
     Dosage: AT BED TIME
     Route: 048

REACTIONS (3)
  - HAEMATURIA [None]
  - ABDOMINAL DISTENSION [None]
  - DYSKINESIA [None]
